FAERS Safety Report 7539807-0 (Version None)
Quarter: 2011Q2

REPORT INFORMATION
  Report Type: 
  Country: None (occurrence: None)
  Receive Date: 20110610
  Receipt Date: 20110606
  Transmission Date: 20111010
  Serious: Yes (Life-Threatening)
  Sender: FDA-Public Use
  Company Number: PHHY2011FR49175

PATIENT
  Age: 85 Year
  Sex: Female

DRUGS (5)
  1. EXELON [Concomitant]
     Dates: start: 20100101
  2. ATHYMIL [Suspect]
     Indication: DEPRESSION
     Dosage: 10 MG, QD
     Dates: start: 20110408
  3. MODOPAR [Concomitant]
     Dates: start: 20100101
  4. CLOZAPINE [Suspect]
     Indication: HALLUCINATION
     Dosage: 25 MG, QD
     Route: 048
     Dates: start: 20110412, end: 20110415
  5. IMOVANE [Concomitant]
     Dosage: 7.5 MG, QD
     Dates: start: 20100101

REACTIONS (1)
  - CARDIO-RESPIRATORY ARREST [None]
